FAERS Safety Report 24734078 (Version 1)
Quarter: 2024Q4

REPORT INFORMATION
  Report Type: Spontaneous
  Country: US (occurrence: US)
  Receive Date: 20241214
  Receipt Date: 20241214
  Transmission Date: 20250115
  Serious: Yes (Hospitalization, Other)
  Sender: DR REDDYS
  Company Number: US-DRL-USA-LIT/USA/24/0018125

PATIENT
  Age: 71 Year
  Sex: Male

DRUGS (12)
  1. ATORVASTATIN [Suspect]
     Active Substance: ATORVASTATIN
     Indication: Prophylaxis
  2. LEVETIRACETAM [Concomitant]
     Active Substance: LEVETIRACETAM
     Indication: Partial seizures
     Dosage: MAINTENANCE THERAPY
  3. LEVETIRACETAM [Concomitant]
     Active Substance: LEVETIRACETAM
     Dosage: MAINTENANCE THERAPY
  4. LEVETIRACETAM [Concomitant]
     Active Substance: LEVETIRACETAM
     Dosage: LOADING DOSE
  5. ASPIRIN [Concomitant]
     Active Substance: ASPIRIN
     Indication: Antiplatelet therapy
  6. ASPIRIN [Concomitant]
     Active Substance: ASPIRIN
     Dosage: MAINTENANCE THERAPY
  7. ASPIRIN [Concomitant]
     Active Substance: ASPIRIN
     Dosage: MAINTENANCE THERAPY
  8. METHYLPREDNISOLONE [Concomitant]
     Active Substance: METHYLPREDNISOLONE
     Indication: Product used for unknown indication
     Dosage: 4 DAYS
  9. METHYLPREDNISOLONE [Concomitant]
     Active Substance: METHYLPREDNISOLONE
     Dosage: MAINTENANCE THERAPY
  10. METHYLPREDNISOLONE [Concomitant]
     Active Substance: METHYLPREDNISOLONE
     Dosage: MAINTENANCE THERAPY
  11. PREDNISONE [Concomitant]
     Active Substance: PREDNISONE
     Indication: Product used for unknown indication
     Dosage: PROLONGED TAPER OF ORAL PREDNISONE STARTING WITH 60 MG DAILY, DECREASING BY 10 MG EVERY WEEK
  12. LECANEMAB [Concomitant]
     Active Substance: LECANEMAB
     Indication: Dementia Alzheimer^s type

REACTIONS (1)
  - Drug ineffective [Unknown]
